FAERS Safety Report 25198413 (Version 1)
Quarter: 2025Q2

REPORT INFORMATION
  Report Type: Spontaneous
  Country: CA (occurrence: CA)
  Receive Date: 20250415
  Receipt Date: 20250415
  Transmission Date: 20250717
  Serious: Yes (Life-Threatening, Hospitalization, Other)
  Sender: BRACCO
  Company Number: CA-BRACCO-2025CA02226

PATIENT
  Age: 72 Year
  Sex: Male

DRUGS (1)
  1. MULTIHANCE [Suspect]
     Active Substance: GADOBENATE DIMEGLUMINE
     Indication: Magnetic resonance imaging head
     Route: 042
     Dates: start: 20250402, end: 20250402

REACTIONS (2)
  - Anaphylactic reaction [Recovered/Resolved]
  - Acute cardiac event [Recovered/Resolved]

NARRATIVE: CASE EVENT DATE: 20250402
